FAERS Safety Report 20996812 (Version 1)
Quarter: 2022Q2

REPORT INFORMATION
  Report Type: Spontaneous
  Country: NL (occurrence: NL)
  Receive Date: 20220623
  Receipt Date: 20220623
  Transmission Date: 20220721
  Serious: Yes (Hospitalization, Other)
  Sender: FDA-Public Use
  Company Number: NL-MLMSERVICE-2022060936055281

PATIENT
  Age: 19 Year
  Sex: Male

DRUGS (3)
  1. ETOPOSIDE [Suspect]
     Active Substance: ETOPOSIDE
     Indication: Haemophagocytic lymphohistiocytosis
  2. HUMAN IMMUNOGLOBULIN G [Concomitant]
     Active Substance: HUMAN IMMUNOGLOBULIN G
     Indication: Salvage therapy
     Route: 042
  3. SIROLIMUS [Concomitant]
     Active Substance: SIROLIMUS
     Indication: Salvage therapy

REACTIONS (5)
  - Pneumonia haemophilus [Unknown]
  - Leukopenia [Unknown]
  - Sepsis [Unknown]
  - Pneumonia bacterial [Unknown]
  - Off label use [Unknown]
